FAERS Safety Report 8872761 (Version 1)
Quarter: 2012Q4

REPORT INFORMATION
  Report Type: 
  Country: US (occurrence: US)
  Receive Date: 20121026
  Receipt Date: 20121026
  Transmission Date: 20130627
  Serious: No
  Sender: FDA-Public Use
  Company Number: US-AMGEN-USASP2012051123

PATIENT
  Sex: Male

DRUGS (3)
  1. ENBREL [Suspect]
     Indication: PRODUCT USED FOR UNKNOWN INDICATION
     Dosage: 50 mg, qwk
     Route: 058
  2. CLARITIN-D [Concomitant]
     Dosage: 10-240 mg
  3. ASPIRIN E.C [Concomitant]
     Dosage: 81 mg, UNK

REACTIONS (2)
  - Infection [Unknown]
  - Weight increased [Unknown]
